FAERS Safety Report 23605103 (Version 1)
Quarter: 2024Q1

REPORT INFORMATION
  Report Type: Spontaneous
  Country: CA (occurrence: CA)
  Receive Date: 20240307
  Receipt Date: 20240307
  Transmission Date: 20240409
  Serious: Yes (Other)
  Sender: FDA-Public Use
  Company Number: CA-TARO PHARMACEUTICALS USA INC.-2024TAR00264

PATIENT

DRUGS (6)
  1. HYDROCORTISONE VALERATE [Suspect]
     Active Substance: HYDROCORTISONE VALERATE
     Indication: Dermatitis atopic
     Dosage: UNK
     Route: 061
     Dates: start: 20231207
  2. CIBINQO [Suspect]
     Active Substance: ABROCITINIB
     Indication: Dermatitis atopic
     Dosage: 100 MG, OD
     Route: 048
     Dates: start: 20231027
  3. CIBINQO [Suspect]
     Active Substance: ABROCITINIB
     Dosage: 200 MG, OD
     Route: 048
  4. FUCIDIN [Concomitant]
     Active Substance: FUSIDATE SODIUM
     Indication: Dermatitis atopic
     Dosage: UNK
     Route: 065
  5. HYDROCORTISONE VALERATE [Concomitant]
     Active Substance: HYDROCORTISONE VALERATE
     Indication: Dermatitis atopic
     Dosage: UNK
     Route: 061
  6. RUPATADINE FUMARATE [Concomitant]
     Active Substance: RUPATADINE FUMARATE
     Indication: Dermatitis atopic
     Dosage: UNK
     Route: 065

REACTIONS (9)
  - Hypersensitivity [Unknown]
  - Constipation [Unknown]
  - Nausea [Recovered/Resolved]
  - Condition aggravated [Not Recovered/Not Resolved]
  - Dermatitis acneiform [Not Recovered/Not Resolved]
  - Sunburn [Unknown]
  - Skin exfoliation [Unknown]
  - Pain [Unknown]
  - Urticaria [Unknown]

NARRATIVE: CASE EVENT DATE: 20230101
